FAERS Safety Report 24352311 (Version 1)
Quarter: 2024Q3

REPORT INFORMATION
  Report Type: Spontaneous
  Country: US (occurrence: None)
  Receive Date: 20240923
  Receipt Date: 20240923
  Transmission Date: 20241017
  Serious: No
  Sender: Public
  Company Number: None

PATIENT
  Age: 64 Year
  Sex: Female

DRUGS (8)
  1. XDEMVY [Suspect]
     Active Substance: LOTILANER
     Indication: Blepharitis
     Dosage: ONE DROP BID OPHTHALMIC
     Route: 047
     Dates: start: 20240824, end: 20240830
  2. ESATROGEL 0.06% GEL [Concomitant]
  3. MAGNESIUM CITRATE [Concomitant]
     Route: 061
  4. METAMUCIL 0.36GM [Concomitant]
  5. PROGESTERONE POWDER [Concomitant]
  6. VITAMIN D 1,000IU [Concomitant]
  7. VITAMIN K1 [Concomitant]
     Active Substance: PHYTONADIONE
  8. VAGIFEM VAG TABS [Concomitant]

REACTIONS (2)
  - Condition aggravated [None]
  - Blepharitis [None]

NARRATIVE: CASE EVENT DATE: 20240825
